FAERS Safety Report 11628222 (Version 1)
Quarter: 2015Q4

REPORT INFORMATION
  Report Type: Spontaneous
  Country: US (occurrence: US)
  Receive Date: 20151014
  Receipt Date: 20151014
  Transmission Date: 20160304
  Serious: No
  Sender: FDA-Public Use
  Company Number: US-JNJFOC-20150913180

PATIENT
  Sex: Female

DRUGS (3)
  1. ZYRTEC [Suspect]
     Active Substance: CETIRIZINE HYDROCHLORIDE
     Indication: MIGRAINE
     Route: 048
  2. ZYRTEC [Suspect]
     Active Substance: CETIRIZINE HYDROCHLORIDE
     Route: 048
  3. TYLENOL EXTRA STRENGTH [Suspect]
     Active Substance: ACETAMINOPHEN
     Indication: MIGRAINE
     Dosage: 2 TABLETS ONCE
     Route: 048

REACTIONS (2)
  - Product use issue [Unknown]
  - Therapeutic response unexpected [Unknown]
